FAERS Safety Report 8436537-8 (Version None)
Quarter: 2012Q2

REPORT INFORMATION
  Report Type: 
  Country: None (occurrence: None)
  Receive Date: 20120614
  Receipt Date: 20120607
  Transmission Date: 20120825
  Serious: Yes (Death)
  Sender: FDA-Public Use
  Company Number: GR-GLAXOSMITHKLINE-B0807855A

PATIENT
  Age: 50 Year
  Sex: Female

DRUGS (1)
  1. ARIXTRA [Suspect]
     Indication: HIP FRACTURE
     Route: 065

REACTIONS (1)
  - PULMONARY EMBOLISM [None]
